FAERS Safety Report 5798831-9 (Version None)
Quarter: 2008Q2

REPORT INFORMATION
  Report Type: 
  Country: None (occurrence: None)
  Receive Date: 20080630
  Receipt Date: 20080616
  Transmission Date: 20081010
  Serious: Yes (Life-Threatening)
  Sender: FDA-Public Use
  Company Number: 001370

PATIENT
  Age: 19 Month
  Sex: Male

DRUGS (8)
  1. BUSULFEX [Suspect]
     Indication: STEM CELL TRANSPLANT
     Dosage: 9.2 ML INTRAVENOUS; 10 ML, DAILY DOSE; INTRAVENOUS
     Route: 042
     Dates: start: 20080221, end: 20080222
  2. BUSULFEX [Suspect]
     Indication: STEM CELL TRANSPLANT
     Dosage: 9.2 ML INTRAVENOUS; 10 ML, DAILY DOSE; INTRAVENOUS
     Route: 042
     Dates: start: 20080223, end: 20080224
  3. MELPHALAN (MELPHALAN) [Concomitant]
  4. CLONAZEPAM [Concomitant]
  5. NEUPOGEN [Concomitant]
  6. METHOTREXATE [Concomitant]
  7. TACROLIMUS [Concomitant]
  8. FLUDARABINE PHOSPHATE [Concomitant]

REACTIONS (1)
  - BONE MARROW TRANSPLANT REJECTION [None]
